FAERS Safety Report 5177212-5 (Version None)
Quarter: 2006Q4

REPORT INFORMATION
  Report Type: 
  Country: None (occurrence: None)
  Receive Date: 20061218
  Receipt Date: 20061121
  Transmission Date: 20070319
  Serious: Yes (Life-Threatening, Hospitalization, Other)
  Sender: FDA-Public Use
  Company Number: BE-ELI_LILLY_AND_COMPANY-BE200611004388

PATIENT
  Age: 17 Year
  Sex: Male
  Weight: 60 kg

DRUGS (2)
  1. STRATTERA [Suspect]
     Indication: ATTENTION DEFICIT/HYPERACTIVITY DISORDER
     Dosage: 60 MG, DAILY (1/D)
     Route: 048
     Dates: start: 20051204, end: 20061121
  2. STRATTERA [Suspect]
     Dosage: 26  TABLETS
     Route: 048
     Dates: start: 20061121, end: 20061121

REACTIONS (6)
  - CONVULSION [None]
  - INTENTIONAL OVERDOSE [None]
  - LACERATION [None]
  - MOOD SWINGS [None]
  - SELF MUTILATION [None]
  - SUICIDE ATTEMPT [None]
